FAERS Safety Report 4921570-0 (Version None)
Quarter: 2006Q1

REPORT INFORMATION
  Report Type: 
  Country: None (occurrence: None)
  Receive Date: 20060223
  Receipt Date: 20060223
  Transmission Date: 20060701
  Serious: Yes (Hospitalization)
  Sender: FDA-Public Use
  Company Number: None

PATIENT
  Age: 46 Year
  Sex: Female
  Weight: 58.514 kg

DRUGS (13)
  1. BEVACIZUMAB [Suspect]
     Indication: COLON CANCER
     Dosage: 5 MG/KG DAY 1 IV
     Route: 042
     Dates: start: 20051115, end: 20060214
  2. OXALIPLATIN [Suspect]
     Indication: COLON CANCER
     Dosage: 85 MG/M2 DAY 1 IV
     Route: 042
     Dates: start: 20051115, end: 20060214
  3. LEUCOVORIN CALCIUM [Suspect]
     Indication: COLON CANCER
     Dosage: 400 MG/M2  DAY 1 IV
     Route: 042
     Dates: start: 20051115, end: 20060214
  4. FLUOROURACIL [Suspect]
     Indication: COLON CANCER
     Dosage: 400 MG/M2 + 1200 MG/M2
     Dates: start: 20051115, end: 20060214
  5. ERLOTINIB [Suspect]
     Indication: COLON CANCER
     Dosage: 150 MG DAILY ORAL
     Route: 048
     Dates: start: 20051115, end: 20060213
  6. ATIVAN [Concomitant]
  7. CLEOCIN T [Concomitant]
  8. COMPAZINE [Concomitant]
  9. LEVAQUIN [Concomitant]
  10. LIDOCAINE/DIPHENH [Concomitant]
  11. LOMOTIL [Concomitant]
  12. PREDNISONE [Concomitant]
  13. PROCTOFOAM HC [Concomitant]

REACTIONS (3)
  - DIARRHOEA [None]
  - HYDRONEPHROSIS [None]
  - NEPHROLITHIASIS [None]
